FAERS Safety Report 11682301 (Version 1)
Quarter: 2015Q4

REPORT INFORMATION
  Report Type: Spontaneous
  Country: US (occurrence: US)
  Receive Date: 20151029
  Receipt Date: 20151029
  Transmission Date: 20160304
  Serious: Yes (Hospitalization)
  Sender: FDA-Public Use
  Company Number: US-SA-2015SA171551

PATIENT
  Age: 62 Year
  Sex: Female
  Weight: 96.79 kg

DRUGS (24)
  1. NORMAL SALINE [Concomitant]
     Active Substance: SODIUM CHLORIDE
     Indication: FLUSHING
     Dosage: AS DIRECTED
     Dates: start: 20150529
  2. LANTUS [Concomitant]
     Active Substance: INSULIN GLARGINE
     Dosage: AT BEDTIME DOSE:20 UNIT(S)
     Dates: start: 20140312
  3. CRESTOR [Concomitant]
     Active Substance: ROSUVASTATIN CALCIUM
     Dates: start: 20140312
  4. FUROSEMIDE. [Concomitant]
     Active Substance: FUROSEMIDE
     Dates: start: 20140312
  5. FLUOXETINE [Concomitant]
     Active Substance: FLUOXETINE HYDROCHLORIDE
     Dates: start: 20140312
  6. CALCIUM CARBONATE. [Concomitant]
     Active Substance: CALCIUM CARBONATE
     Dates: start: 20140312
  7. VENLAFAXINE [Concomitant]
     Active Substance: VENLAFAXINE HYDROCHLORIDE
     Dates: start: 20140312
  8. TACROLIMUS. [Concomitant]
     Active Substance: TACROLIMUS
     Dates: start: 20140312
  9. FABRAZYME [Suspect]
     Active Substance: AGALSIDASE BETA
     Indication: LIPIDOSIS
     Dosage: THERAPY START DATE: ACCREDO FIRST SHIPPED ON 7/02/2013
     Route: 041
  10. DIPHENHYDRAMINE. [Concomitant]
     Active Substance: DIPHENHYDRAMINE
     Indication: ANAPHYLACTIC REACTION
     Dates: start: 20150529
  11. KLONOPIN [Concomitant]
     Active Substance: CLONAZEPAM
     Dates: start: 20140312
  12. NIFEDIPINE. [Concomitant]
     Active Substance: NIFEDIPINE
     Dates: start: 20140312
  13. ASPIRIN. [Concomitant]
     Active Substance: ASPIRIN
     Dates: start: 20140312
  14. FABRAZYME [Suspect]
     Active Substance: AGALSIDASE BETA
     Indication: LIPIDOSIS
     Dosage: THERAPY START DATE: ACCREDO FIRST SHIPPED ON 7/02/2013
     Route: 041
  15. PREDNISONE. [Concomitant]
     Active Substance: PREDNISONE
     Dates: start: 20140312
  16. SEROQUEL [Concomitant]
     Active Substance: QUETIAPINE FUMARATE
     Dates: start: 20140312
  17. NORMAL SALINE [Concomitant]
     Active Substance: SODIUM CHLORIDE
     Indication: MEDICATION DILUTION
     Dosage: AS DIRECTED
     Dates: start: 20150529
  18. HUMALOG [Concomitant]
     Active Substance: INSULIN LISPRO
     Dosage: DOSE:10 UNIT(S)
     Dates: start: 20140312
  19. BUSPIRONE [Concomitant]
     Active Substance: BUSPIRONE HYDROCHLORIDE
     Dates: start: 20140312
  20. LISINOPRIL. [Concomitant]
     Active Substance: LISINOPRIL
     Dates: start: 20140312
  21. FERROUS SULFATE [Concomitant]
     Active Substance: FERROUS SULFATE\FERROUS SULFATE, DRIED
     Dates: start: 20140312
  22. METOPROLOL [Concomitant]
     Active Substance: METOPROLOL
     Dates: start: 20140312
  23. PANTHENOL/RETINOL/THIAMINE HYDROCHLORIDE/ASCORBIC ACID/ERGOCALCIFEROL/FOLIC ACID/RIBOFLAVIN/NICOTINA [Concomitant]
     Dates: start: 20140312
  24. EPIPEN [Concomitant]
     Active Substance: EPINEPHRINE
     Indication: ANAPHYLACTIC REACTION
     Dates: start: 20150529

REACTIONS (2)
  - Blood potassium abnormal [Recovered/Resolved]
  - Upper limb fracture [Recovered/Resolved]

NARRATIVE: CASE EVENT DATE: 20151007
